FAERS Safety Report 12841738 (Version 1)
Quarter: 2016Q4

REPORT INFORMATION
  Report Type: Spontaneous
  Country: US (occurrence: US)
  Receive Date: 20161012
  Receipt Date: 20161012
  Transmission Date: 20170207
  Serious: Yes (Other)
  Sender: FDA-Public Use
  Company Number: US-TEVA-701958USA

PATIENT
  Age: 78 Year
  Sex: Male

DRUGS (1)
  1. WARFARIN [Suspect]
     Active Substance: WARFARIN

REACTIONS (6)
  - Lethargy [Unknown]
  - Pyrexia [Unknown]
  - Peripheral swelling [Unknown]
  - Erythema [Unknown]
  - Staphylococcal sepsis [Unknown]
  - Drug interaction [Unknown]
